FAERS Safety Report 7605488-0 (Version None)
Quarter: 2011Q3

REPORT INFORMATION
  Report Type: 
  Country: None (occurrence: None)
  Receive Date: 20110712
  Receipt Date: 20110712
  Transmission Date: 20111222
  Serious: No
  Sender: FDA-Public Use
  Company Number: None

PATIENT
  Age: 89 Year
  Sex: Male
  Weight: 69.5 kg

DRUGS (2)
  1. SULFAMETHOXAZOLE AND TRIMETHOPRIM [Suspect]
     Indication: INFECTED CYST
     Dosage: 1 TAB BID PO
     Route: 048
     Dates: start: 20110410, end: 20110415
  2. LISINOPRIL [Suspect]
     Indication: HYPERTENSION
     Dosage: 20 MG EVERY DAY PO
     Route: 048
     Dates: start: 20030530, end: 20110412

REACTIONS (3)
  - HYPERTENSION [None]
  - RENAL FAILURE CHRONIC [None]
  - HYPERKALAEMIA [None]
